FAERS Safety Report 6673576-1 (Version None)
Quarter: 2010Q2

REPORT INFORMATION
  Report Type: 
  Country: None (occurrence: None)
  Receive Date: 20100408
  Receipt Date: 20100329
  Transmission Date: 20101027
  Serious: Yes (Other)
  Sender: FDA-Public Use
  Company Number: US-PFIZER INC-2009226082

PATIENT
  Sex: Female

DRUGS (3)
  1. XALATAN [Suspect]
     Dosage: ONE DROP IN EACH EYE
     Route: 061
     Dates: start: 20081201
  2. BRIMONIDINE [Suspect]
     Dosage: UNK %, UNK
  3. TIMOLOL MALEATE [Suspect]

REACTIONS (2)
  - HYPERSENSITIVITY [None]
  - INTRAOCULAR PRESSURE TEST ABNORMAL [None]
